FAERS Safety Report 21963436 (Version 1)
Quarter: 2023Q1

REPORT INFORMATION
  Report Type: Spontaneous
  Country: US (occurrence: US)
  Receive Date: 20230207
  Receipt Date: 20230207
  Transmission Date: 20230417
  Serious: Yes (Hospitalization, Other)
  Sender: FDA-Public Use
  Company Number: US-BIOXCEL THERAPEUTICS, INC.-2023BIX00011

PATIENT
  Age: 43 Year
  Sex: Male

DRUGS (5)
  1. IGALMI [Suspect]
     Active Substance: DEXMEDETOMIDINE
     Indication: Agitation
     Dosage: UNK
     Dates: end: 202204
  2. IGALMI [Suspect]
     Active Substance: DEXMEDETOMIDINE
     Dosage: 180 ?G, 1X/DAY AT BEDTIME, UNREPORTED ROUTE
     Dates: start: 202204
  3. IGALMI [Suspect]
     Active Substance: DEXMEDETOMIDINE
     Indication: Agitation
     Dosage: UNK
     Dates: end: 202204
  4. IGALMI [Suspect]
     Active Substance: DEXMEDETOMIDINE
     Dosage: 120 UG AS NEEDED FOR MID-NIGHT AWAKENINGS, 2-3X/WEEK
     Dates: start: 202204
  5. UNSPECIFIED INGREDIENT [Suspect]
     Active Substance: UNSPECIFIED INGREDIENT
     Indication: Seizure

REACTIONS (5)
  - Hospitalisation [Unknown]
  - COVID-19 [Unknown]
  - Pneumonia bacterial [Unknown]
  - Seizure [Unknown]
  - Off label use [Unknown]

NARRATIVE: CASE EVENT DATE: 20220101
